FAERS Safety Report 8990815 (Version 1)
Quarter: 2012Q4

REPORT INFORMATION
  Report Type: Spontaneous
  Country: US (occurrence: None)
  Receive Date: 20121226
  Receipt Date: 20121226
  Transmission Date: 20130627
  Serious: Yes (Life-Threatening)
  Sender: FDA-Public Use
  Company Number: None

PATIENT

DRUGS (1)
  1. PROTAMINE SULFATE [Suspect]
     Indication: CARDIAC OPERATION
     Dates: start: 20121221, end: 20121221

REACTIONS (2)
  - Hypotension [None]
  - Hypersensitivity [None]
